FAERS Safety Report 10233662 (Version 2)
Quarter: 2014Q3

REPORT INFORMATION
  Report Type: Spontaneous
  Country: DK (occurrence: None)
  Receive Date: 20140610
  Receipt Date: 20140902
  Transmission Date: 20150326
  Serious: Yes (Other)
  Sender: FDA-Public Use
  Company Number: FK201402183

PATIENT
  Age: 53 Year
  Sex: Female

DRUGS (4)
  1. TAMOXIFEN [Concomitant]
     Active Substance: TAMOXIFEN
  2. CEFUROXIME (MANUFACTURER UNKNOWN) (CEFUROXIME) (CEFUROXIME) [Suspect]
     Active Substance: CEFUROXIME
     Indication: PRODUCT USED FOR UNKNOWN INDICATION
  3. EXEMESTAN [Concomitant]
     Active Substance: EXEMESTANE
  4. AFINITOR [Suspect]
     Active Substance: EVEROLIMUS
     Indication: BREAST CANCER METASTATIC
     Route: 048
     Dates: start: 20130316, end: 20130825

REACTIONS (8)
  - Oral fungal infection [None]
  - Rash [None]
  - Urticaria [None]
  - Bone marrow failure [None]
  - Anaphylactic reaction [None]
  - Type I hypersensitivity [None]
  - Stomatitis [None]
  - Pneumonia [None]

NARRATIVE: CASE EVENT DATE: 20130403
